FAERS Safety Report 6318558-4 (Version None)
Quarter: 2009Q3

REPORT INFORMATION
  Report Type: 
  Country: None (occurrence: None)
  Receive Date: 20090821
  Receipt Date: 20090813
  Transmission Date: 20100115
  Serious: Yes (Other)
  Sender: FDA-Public Use
  Company Number: PHHY2009FR33942

PATIENT
  Age: 45 Year
  Sex: Male

DRUGS (5)
  1. GLEEVEC [Suspect]
     Dosage: 400 MG/DAY
     Route: 048
     Dates: start: 20050407
  2. GLEEVEC [Suspect]
     Dosage: 600 MG/DAY
     Dates: start: 20050704
  3. GLEEVEC [Suspect]
     Dosage: 600 MG/DAY
     Dates: start: 20080421
  4. GLEEVEC [Suspect]
     Dosage: 400 MG/DAY
     Dates: start: 20090130
  5. IMUREL [Concomitant]

REACTIONS (12)
  - ABDOMINAL PAIN UPPER [None]
  - ANAL CANDIDIASIS [None]
  - ANAL FISTULA [None]
  - ANAL INFLAMMATION [None]
  - CROHN'S DISEASE [None]
  - DIARRHOEA [None]
  - HAEMORRHOIDS [None]
  - ILEITIS [None]
  - PROCTALGIA [None]
  - RECTAL ABSCESS [None]
  - SKIN DISORDER [None]
  - VOMITING [None]
